FAERS Safety Report 13910512 (Version 1)
Quarter: 2017Q3

REPORT INFORMATION
  Report Type: Spontaneous
  Country: US (occurrence: US)
  Receive Date: 20170825
  Receipt Date: 20170825
  Transmission Date: 20171127
  Serious: Yes (Hospitalization)
  Sender: FDA-Public Use
  Company Number: None

PATIENT
  Age: 76 Year
  Sex: Female
  Weight: 52.1 kg

DRUGS (1)
  1. ERIBULIN [Suspect]
     Active Substance: ERIBULIN
     Indication: CERVIX CARCINOMA
     Dosage: ?          OTHER FREQUENCY:D1 AND D8 Q 21 DAY;?
     Route: 042
     Dates: start: 20170315, end: 20170816

REACTIONS (6)
  - Blister [None]
  - Pain in extremity [None]
  - Cellulitis [None]
  - Pyrexia [None]
  - Pulmonary embolism [None]
  - Diabetes mellitus inadequate control [None]

NARRATIVE: CASE EVENT DATE: 20170825
